FAERS Safety Report 18959651 (Version 4)
Quarter: 2021Q2

REPORT INFORMATION
  Report Type: Spontaneous
  Country: US (occurrence: US)
  Receive Date: 20210302
  Receipt Date: 20210401
  Transmission Date: 20210717
  Serious: Yes (Other)
  Sender: FDA-Public Use
  Company Number: US-NOVEN PHARMACEUTICALS, INC.-2021US001713

PATIENT
  Sex: Female

DRUGS (1)
  1. DAYTRANA [Suspect]
     Active Substance: METHYLPHENIDATE
     Indication: ATTENTION DEFICIT HYPERACTIVITY DISORDER
     Dosage: 30MG/9 HOURS, UNKNOWN
     Route: 062

REACTIONS (6)
  - Off label use [Recovered/Resolved]
  - No adverse event [Unknown]
  - Product adhesion issue [Recovered/Resolved]
  - Product administration error [Recovered/Resolved]
  - Device adhesion issue [Recovered/Resolved]
  - Device difficult to use [Recovered/Resolved]
